FAERS Safety Report 12911290 (Version 2)
Quarter: 2017Q1

REPORT INFORMATION
  Report Type: Spontaneous
  Country: JP (occurrence: JP)
  Receive Date: 20161104
  Receipt Date: 20170215
  Transmission Date: 20170428
  Serious: Yes (Life-Threatening, Hospitalization, Other)
  Sender: FDA-Public Use
  Company Number: JP-PFIZER INC-2016429852

PATIENT
  Age: 50 Year
  Sex: Male
  Weight: 112 kg

DRUGS (9)
  1. JANVIA [Concomitant]
     Dosage: 50 MG, 1X/DAY
     Route: 048
  2. PIOGLITAZONE. [Concomitant]
     Active Substance: PIOGLITAZONE
     Dosage: 15 MG, 1X/DAY
     Route: 048
  3. TRAMAL OD [Suspect]
     Active Substance: TRAMADOL
     Dosage: 9000 MG (50MG, 181 PILLS)
     Route: 048
     Dates: start: 20160912
  4. CRESTOR [Concomitant]
     Active Substance: ROSUVASTATIN CALCIUM
     Dosage: 2.5 MG, 1X/DAY
     Route: 048
  5. TAKELDA [Concomitant]
     Active Substance: ASPIRIN\LANSOPRAZOLE
     Dosage: UNK UNK, 1X/DAY
     Route: 048
  6. INVEGA [Concomitant]
     Active Substance: PALIPERIDONE
     Dosage: 6 MG, 1X/DAY
     Route: 048
  7. LYRICA [Suspect]
     Active Substance: PREGABALIN
     Dosage: 450 MG, SINGLE(75MG SIX TABLET)
     Dates: start: 20160912
  8. RISPERIDONE. [Concomitant]
     Active Substance: RISPERIDONE
     Dosage: 1 MG, 1X/DAY
     Route: 048
  9. TOVIAZ [Suspect]
     Active Substance: FESOTERODINE FUMARATE
     Dosage: 72 MG, SINGLE
     Route: 048
     Dates: start: 20160912

REACTIONS (7)
  - Suicide attempt [Unknown]
  - Loss of consciousness [Recovered/Resolved]
  - Pneumonia aspiration [Unknown]
  - Hypokalaemia [Unknown]
  - Seizure [Recovered/Resolved]
  - Overdose [Recovered/Resolved]
  - Respiratory depression [Recovered/Resolved]

NARRATIVE: CASE EVENT DATE: 20160912
